FAERS Safety Report 5526011-0 (Version None)
Quarter: 2007Q4

REPORT INFORMATION
  Report Type: 
  Country: None (occurrence: None)
  Receive Date: 20071126
  Receipt Date: 20071109
  Transmission Date: 20080405
  Serious: Yes (Hospitalization, Other)
  Sender: FDA-Public Use
  Company Number: GR-BOEHRINGER INGELHEIM PHARMACEUTICALS, INC.-2007-DE-06937VA

PATIENT
  Age: 50 Year
  Sex: Female
  Weight: 77 kg

DRUGS (1)
  1. LOXITAN [Suspect]
     Indication: PERIARTHRITIS
     Route: 048
     Dates: start: 20070621, end: 20070621

REACTIONS (6)
  - ERYTHEMA [None]
  - FACE OEDEMA [None]
  - GENERALISED ERYTHEMA [None]
  - GENERALISED OEDEMA [None]
  - PRURITUS [None]
  - PRURITUS GENERALISED [None]
